FAERS Safety Report 15617104 (Version 3)
Quarter: 2018Q4

REPORT INFORMATION
  Report Type: Other
  Country: RU (occurrence: RU)
  Receive Date: 20181114
  Receipt Date: 20181205
  Transmission Date: 20190205
  Serious: Yes (Death, Hospitalization, Other)
  Sender: FDA-Public Use
  Company Number: RU-PROVELL PHARMACEUTICALS-2058840

PATIENT
  Age: 65 Year
  Sex: Female

DRUGS (2)
  1. EUTHYROX [Suspect]
     Active Substance: LEVOTHYROXINE SODIUM
     Indication: HYPOTHYROIDISM
  2. NIVOLUMAB [Suspect]
     Active Substance: NIVOLUMAB

REACTIONS (6)
  - Metastases to lung [None]
  - Pleurisy [None]
  - Renal cancer stage III [None]
  - Sepsis [Fatal]
  - Metastases to liver [None]
  - Cardiac failure [Fatal]

NARRATIVE: CASE EVENT DATE: 201706
